FAERS Safety Report 8779814 (Version 5)
Quarter: 2012Q4

REPORT INFORMATION
  Report Type: Report from Study
  Country: US (occurrence: US)
  Receive Date: 20120912
  Receipt Date: 20121119
  Transmission Date: 20130627
  Serious: Yes (Hospitalization)
  Sender: FDA-Public Use
  Company Number: US-ABBOTT-12P-163-0977798-00

PATIENT
  Sex: Female
  Weight: 47.67 kg

DRUGS (1)
  1. HUMIRA [Suspect]
     Indication: RHEUMATOID ARTHRITIS
     Route: 058
     Dates: start: 20060613, end: 20120801

REACTIONS (4)
  - Encephalitis [Recovered/Resolved]
  - Herpes zoster [Recovered/Resolved]
  - Urinary tract infection [Recovered/Resolved]
  - Renal failure [Unknown]
